FAERS Safety Report 23865355 (Version 1)
Quarter: 2024Q2

REPORT INFORMATION
  Report Type: Spontaneous
  Country: MX (occurrence: MX)
  Receive Date: 20240517
  Receipt Date: 20240517
  Transmission Date: 20240716
  Serious: Yes (Hospitalization)
  Sender: FDA-Public Use
  Company Number: MX-NOVOPROD-1218512

PATIENT
  Age: 71 Year
  Sex: Female
  Weight: 50 kg

DRUGS (2)
  1. RYZODEG 70/30 [Suspect]
     Active Substance: INSULIN ASPART\INSULIN DEGLUDEC
     Indication: Type 2 diabetes mellitus
     Dosage: 15 IU, BID( IN THE MORNING)
     Route: 058
  2. OXYGEN [Concomitant]
     Active Substance: OXYGEN
     Indication: Lung disorder
     Dosage: QD,OXYGEN IN AVERAGE 18 HOURS PER DAY (DOES NOT KNOW THE UNITS)

REACTIONS (4)
  - Pneumonia [Unknown]
  - COVID-19 [Unknown]
  - Influenza [Unknown]
  - Blood glucose increased [Unknown]

NARRATIVE: CASE EVENT DATE: 20231201
